FAERS Safety Report 8301169-9 (Version None)
Quarter: 2012Q2

REPORT INFORMATION
  Report Type: 
  Country: None (occurrence: None)
  Receive Date: 20120420
  Receipt Date: 20120417
  Transmission Date: 20120825
  Serious: Yes (Death, Hospitalization)
  Sender: FDA-Public Use
  Company Number: PHHO2012US004931

PATIENT
  Sex: Female
  Weight: 62.7 kg

DRUGS (13)
  1. TACROLIMUS [Concomitant]
     Indication: RENAL TRANSPLANT
     Dosage: 3 MG AM + 4 MG PM, QD
     Route: 048
     Dates: start: 20110214, end: 20120107
  2. GLIPIZIDE [Concomitant]
     Dosage: 100 MG, QD
  3. BACTRIM [Concomitant]
     Dosage: DS, QD
  4. CLONIDINE [Concomitant]
     Dosage: 0.1 MG, QD
  5. BENADRYL [Concomitant]
     Dosage: UNK
  6. REGLAN [Concomitant]
     Dosage: 5 MG, BID
  7. XANAX [Concomitant]
     Dosage: 0.25 MG, QD
  8. CERTICAN [Suspect]
     Indication: RENAL TRANSPLANT
     Dosage: 0.75 MG, UNK
     Route: 048
     Dates: start: 20101121, end: 20101130
  9. CERTICAN [Suspect]
     Dosage: 1.5 MG, UNK
     Route: 048
     Dates: start: 20101201
  10. LEVOTHYROXINE SODIUM [Concomitant]
     Dosage: 75 MCG, QD
  11. ZOLOFT [Concomitant]
     Dosage: 100 MG, QD
  12. CRESTOR [Concomitant]
     Dosage: 10 MG, QD
  13. INSULIN [Concomitant]
     Dosage: 15 U, QD

REACTIONS (1)
  - ARTERIOSCLEROSIS [None]
